FAERS Safety Report 4535033-8 (Version None)
Quarter: 2004Q4

REPORT INFORMATION
  Report Type: 
  Country: None (occurrence: None)
  Receive Date: 20041222
  Receipt Date: 20030617
  Transmission Date: 20050328
  Serious: Yes (Hospitalization)
  Sender: FDA-Public Use
  Company Number: US-ROCHE-340359

PATIENT
  Sex: Male

DRUGS (11)
  1. FUZEON [Suspect]
     Indication: DRUG USE FOR UNKNOWN INDICATION
     Route: 058
     Dates: start: 20030601
  2. FUZEON [Suspect]
     Dosage: DOSE REPORTED AS: INJECTED {90 MG FOR THE MORNING DOSE
     Route: 065
  3. ASPIRIN [Concomitant]
  4. CARDIAC MEDICATION [Concomitant]
  5. PLAVIX [Concomitant]
  6. TOPROL-XL [Concomitant]
  7. NIACIN [Concomitant]
  8. NORVIR [Concomitant]
  9. KALETRA [Concomitant]
  10. AGENERASE [Concomitant]
  11. VIREAD [Concomitant]

REACTIONS (44)
  - ACCIDENTAL NEEDLE STICK [None]
  - ACUTE MYOCARDIAL INFARCTION [None]
  - ANXIETY [None]
  - BACTERIAL INFECTION [None]
  - CATHETER SITE HAEMORRHAGE [None]
  - CD4 LYMPHOCYTES DECREASED [None]
  - CHEST PAIN [None]
  - DEPRESSION [None]
  - DIARRHOEA [None]
  - FATIGUE [None]
  - FEELING ABNORMAL [None]
  - GAIT DISTURBANCE [None]
  - HEADACHE [None]
  - HEAT RASH [None]
  - HYPERSENSITIVITY [None]
  - INFLUENZA LIKE ILLNESS [None]
  - INJECTION SITE BURNING [None]
  - INJECTION SITE ERYTHEMA [None]
  - INJECTION SITE HAEMORRHAGE [None]
  - INJECTION SITE INDURATION [None]
  - INJECTION SITE MASS [None]
  - INJECTION SITE PAIN [None]
  - INJECTION SITE PRURITUS [None]
  - LICHENIFICATION [None]
  - LYMPHADENITIS [None]
  - LYMPHADENOPATHY [None]
  - MEDICATION ERROR [None]
  - MULTIPLE ALLERGIES [None]
  - NASOPHARYNGITIS [None]
  - NAUSEA [None]
  - NO ADVERSE EFFECT [None]
  - ORAL CANDIDIASIS [None]
  - ORAL HAIRY LEUKOPLAKIA [None]
  - OVERGROWTH BACTERIAL [None]
  - PAIN IN EXTREMITY [None]
  - PHARMACEUTICAL PRODUCT COMPLAINT [None]
  - RASH [None]
  - RASH MACULAR [None]
  - RASH PRURITIC [None]
  - RASH SCALY [None]
  - SCLERODERMA [None]
  - SINUSITIS [None]
  - T-LYMPHOCYTE COUNT DECREASED [None]
  - VOMITING [None]
